FAERS Safety Report 7884339-3 (Version None)
Quarter: 2011Q4

REPORT INFORMATION
  Report Type: 
  Country: None (occurrence: None)
  Receive Date: 20111102
  Receipt Date: 20111024
  Transmission Date: 20120403
  Serious: Yes (Other)
  Sender: FDA-Public Use
  Company Number: HR-ABBOTT-11P-216-0867456-00

PATIENT
  Age: 39 Year
  Sex: Male
  Weight: 84 kg

DRUGS (15)
  1. PANTOPRAZOLE [Concomitant]
     Indication: DYSPEPSIA
     Route: 048
     Dates: start: 20090101
  2. CARVELOL [Concomitant]
     Indication: HYPERTENSION
     Route: 048
     Dates: start: 20090101
  3. LEVOTHYROXINE SODIUM [Concomitant]
     Indication: HYPOTHYROIDISM
     Route: 048
     Dates: start: 20090101
  4. PREDNISONE [Concomitant]
     Indication: IMMUNOSUPPRESSION
     Route: 048
     Dates: start: 20090101
  5. LESCOL XL [Interacting]
     Indication: HYPERLIPIDAEMIA
     Route: 048
     Dates: start: 20100101, end: 20110928
  6. FURSEMID [Concomitant]
     Indication: HYPERTENSION
     Route: 048
  7. TRICOR [Suspect]
     Indication: HYPERLIPIDAEMIA
     Route: 048
     Dates: start: 20110901, end: 20110928
  8. MYCOPHENOLATE MOFETIL (CELLCEPT) [Concomitant]
     Indication: IMMUNOSUPPRESSION
     Route: 048
     Dates: start: 20090101
  9. SANDIMMUNE [Interacting]
     Indication: IMMUNOSUPPRESSION
     Route: 048
     Dates: start: 20090101
  10. ATORVASTATIN CALCIUM [Interacting]
     Indication: PRODUCT USED FOR UNKNOWN INDICATION
     Dates: start: 20100101, end: 20110928
  11. NEBIDO [Concomitant]
     Indication: HYPOGONADISM
     Route: 030
  12. BONIVA [Concomitant]
     Indication: OSTEOPOROSIS
     Route: 048
  13. TRANDOLAPRIL [Concomitant]
     Indication: HYPERTENSION
     Route: 048
     Dates: start: 20090101
  14. ALLOPURINOL [Concomitant]
     Indication: HYPERURICAEMIA
     Route: 048
     Dates: start: 20050101
  15. CARDIOPIRIN [Concomitant]
     Indication: THROMBOSIS PROPHYLAXIS
     Route: 048

REACTIONS (7)
  - ALANINE AMINOTRANSFERASE INCREASED [None]
  - ABDOMINAL DISTENSION [None]
  - BLOOD CREATINE PHOSPHOKINASE INCREASED [None]
  - MYOPATHY [None]
  - DRUG INTERACTION [None]
  - BLOOD CREATININE INCREASED [None]
  - ASPARTATE AMINOTRANSFERASE INCREASED [None]
